FAERS Safety Report 10911885 (Version 2)
Quarter: 2015Q3

REPORT INFORMATION
  Report Type: Spontaneous
  Country: US (occurrence: US)
  Receive Date: 20150313
  Receipt Date: 20150813
  Transmission Date: 20151125
  Serious: Yes (Death, Other)
  Sender: FDA-Public Use
  Company Number: US-ASTRAZENECA-2015SE22427

PATIENT
  Age: 23393 Day
  Sex: Female
  Weight: 80.7 kg

DRUGS (18)
  1. CEPHULAC [Concomitant]
     Active Substance: LACTULOSE
     Route: 048
     Dates: start: 20091001
  2. ATIVAN [Concomitant]
     Active Substance: LORAZEPAM
     Route: 048
     Dates: start: 20091001
  3. BIAXIN [Concomitant]
     Active Substance: CLARITHROMYCIN
     Dates: start: 20000417
  4. CEFDINIR. [Concomitant]
     Active Substance: CEFDINIR
     Dates: start: 20080324
  5. GLUCOPHAGE [Concomitant]
     Active Substance: METFORMIN HYDROCHLORIDE
     Dates: start: 20000612
  6. GLUCOVANCE [Concomitant]
     Active Substance: GLYBURIDE\METFORMIN HYDROCHLORIDE
     Dosage: TWO TIMES A DAY
     Route: 048
     Dates: start: 20091009
  7. DIOVAN [Concomitant]
     Active Substance: VALSARTAN
     Route: 048
     Dates: start: 20091009
  8. OXYCODONE [Concomitant]
     Active Substance: OXYCODONE
     Route: 048
     Dates: start: 20091001
  9. FUROSEMIDE. [Concomitant]
     Active Substance: FUROSEMIDE
     Dates: start: 20000510
  10. BYETTA [Suspect]
     Active Substance: EXENATIDE
     Indication: TYPE 2 DIABETES MELLITUS
     Route: 065
     Dates: start: 20090428
  11. DECADRON [Concomitant]
     Active Substance: DEXAMETHASONE
     Route: 048
     Dates: start: 20091001
  12. GLUCOTROL XL [Concomitant]
     Active Substance: GLIPIZIDE
     Dates: start: 20000612
  13. PREDNISONE. [Concomitant]
     Active Substance: PREDNISONE
     Dates: start: 20090923
  14. HALDOL [Concomitant]
     Active Substance: HALOPERIDOL
     Route: 048
     Dates: start: 20091001
  15. ALLOPURINOL. [Concomitant]
     Active Substance: ALLOPURINOL
     Dates: start: 20080527
  16. BYETTA [Suspect]
     Active Substance: EXENATIDE
     Indication: TYPE 2 DIABETES MELLITUS
     Route: 065
     Dates: start: 20090428, end: 20090812
  17. SYNTHROID [Concomitant]
     Active Substance: LEVOTHYROXINE SODIUM
     Route: 048
     Dates: start: 20000510
  18. PRILOSEC [Concomitant]
     Active Substance: OMEPRAZOLE MAGNESIUM
     Dates: start: 20000508

REACTIONS (8)
  - Metastases to lung [Unknown]
  - Metastases to lymph nodes [Unknown]
  - Jaundice cholestatic [Unknown]
  - Malignant ascites [Unknown]
  - Pancreatic carcinoma metastatic [Fatal]
  - Metastases to peritoneum [Unknown]
  - Metastases to liver [Unknown]
  - Bile duct obstruction [Unknown]

NARRATIVE: CASE EVENT DATE: 20090913
